FAERS Safety Report 13667528 (Version 1)
Quarter: 2017Q2

REPORT INFORMATION
  Report Type: Spontaneous
  Country: US (occurrence: US)
  Receive Date: 20170620
  Receipt Date: 20170620
  Transmission Date: 20170830
  Serious: No
  Sender: FDA-Public Use
  Company Number: US-TEVA-726587ACC

PATIENT
  Sex: Male

DRUGS (1)
  1. CIPROFLOXACIN TABLETS [Suspect]
     Active Substance: CIPROFLOXACIN

REACTIONS (3)
  - Eye disorder [Unknown]
  - Headache [Unknown]
  - Hypoaesthesia [Unknown]
